FAERS Safety Report 6169449-3 (Version None)
Quarter: 2009Q2

REPORT INFORMATION
  Report Type: 
  Country: None (occurrence: None)
  Receive Date: 20090428
  Receipt Date: 20090420
  Transmission Date: 20091009
  Serious: Yes (Other)
  Sender: FDA-Public Use
  Company Number: PHHY2009GB08897

PATIENT
  Sex: Male

DRUGS (2)
  1. ZOMETA [Suspect]
     Indication: METASTASES TO BONE
     Dosage: 4 MG
     Route: 042
     Dates: start: 20090102
  2. GOSERELIN [Concomitant]
     Indication: METASTASIS
     Dosage: 3.6MG OVER 28 DAYS
     Route: 058
     Dates: start: 20090102

REACTIONS (3)
  - CHILLS [None]
  - INFLUENZA LIKE ILLNESS [None]
  - VIRAL INFECTION [None]
